FAERS Safety Report 9492351 (Version 1)
Quarter: 2013Q3

REPORT INFORMATION
  Report Type: Spontaneous
  Country: US (occurrence: US)
  Receive Date: 20130830
  Receipt Date: 20130830
  Transmission Date: 20140515
  Serious: Yes (Hospitalization)
  Sender: FDA-Public Use
  Company Number: US-B.I. PHARMACEUTICALS,INC./RIDGEFIELD-2013-BI-26291BP

PATIENT
  Sex: Female

DRUGS (23)
  1. COMBIVENT [Suspect]
     Indication: CHRONIC OBSTRUCTIVE PULMONARY DISEASE
     Dosage: STRENGTH: 18 MCG / 103 MCG; DAILY DOSE: 144 MCG/824 MCG
     Route: 055
  2. BENICAR [Concomitant]
     Route: 048
  3. CALCIUM [Concomitant]
     Route: 048
  4. FISH OIL [Concomitant]
     Route: 048
  5. PRO AIR [Concomitant]
     Dosage: (INHALATION SPRAY)
     Route: 055
  6. PROTONIX [Concomitant]
     Route: 048
  7. VITAMIN D [Concomitant]
     Route: 048
  8. FLOVENT [Concomitant]
     Dosage: (INHALATION SPRAY)
     Route: 055
  9. PRENISONE [Concomitant]
     Route: 048
  10. FLONASE [Concomitant]
     Dosage: (INHALATION SPRAY)
     Route: 055
  11. SYNTHROID [Concomitant]
     Route: 048
  12. ATIVAN [Concomitant]
     Route: 048
  13. METOPROLOL [Concomitant]
     Route: 048
  14. MUCINEX [Concomitant]
     Route: 048
  15. VITAMIN B [Concomitant]
     Route: 048
  16. ASPIRIN [Concomitant]
     Route: 048
  17. ZITHROMAX [Concomitant]
     Route: 048
  18. MULTIVITAMINS [Concomitant]
     Route: 048
  19. ZOLOFT [Concomitant]
     Route: 048
  20. EPIPEN [Concomitant]
     Route: 030
  21. CLARITIN [Concomitant]
     Route: 048
  22. VICODIN [Concomitant]
     Route: 048
  23. HYDROCORTISONE CREAM [Concomitant]
     Route: 061

REACTIONS (1)
  - Adverse event [Unknown]
